FAERS Safety Report 19055692 (Version 1)
Quarter: 2021Q1

REPORT INFORMATION
  Report Type: Spontaneous
  Country: IN (occurrence: IN)
  Receive Date: 20210325
  Receipt Date: 20210325
  Transmission Date: 20210420
  Serious: Yes (Hospitalization)
  Sender: FDA-Public Use
  Company Number: IN-MYLANLABS-2021M1017917

PATIENT
  Sex: Male

DRUGS (5)
  1. CLOBETASOL PROPIONATE. [Concomitant]
     Active Substance: CLOBETASOL PROPIONATE
     Indication: PSORIASIS
     Dosage: UNK
     Route: 061
  2. METHOTREXATE. [Suspect]
     Active Substance: METHOTREXATE
     Indication: PSORIASIS
     Dosage: 7.5 MILLIGRAM, BID ADMINISTERED ORAL METHOTREXATE..
     Route: 048
  3. FOLIC ACID. [Concomitant]
     Active Substance: FOLIC ACID
     Indication: PRODUCT USED FOR UNKNOWN INDICATION
     Route: 065
  4. DESLORATADINE. [Concomitant]
     Active Substance: DESLORATADINE
     Indication: PSORIASIS
     Dosage: UNK
     Route: 065
  5. BETAMETHASONE W/GENTAMICIN [Concomitant]
     Indication: PSORIASIS
     Dosage: UNK
     Route: 065

REACTIONS (13)
  - Toxicity to various agents [Recovering/Resolving]
  - Leukopenia [Recovering/Resolving]
  - Renal impairment [Recovering/Resolving]
  - Mouth haemorrhage [Recovering/Resolving]
  - Scab [Recovering/Resolving]
  - Liver function test increased [Recovering/Resolving]
  - Incorrect dosage administered [Recovering/Resolving]
  - Laryngeal oedema [Recovering/Resolving]
  - Rash [Recovering/Resolving]
  - Oral discomfort [Recovering/Resolving]
  - Accidental overdose [Recovering/Resolving]
  - Mouth ulceration [Recovering/Resolving]
  - Thrombocytopenia [Recovering/Resolving]
